FAERS Safety Report 7425165-9 (Version None)
Quarter: 2011Q2

REPORT INFORMATION
  Report Type: 
  Country: None (occurrence: None)
  Receive Date: 20110413
  Receipt Date: 20110407
  Transmission Date: 20111010
  Serious: Yes (Hospitalization, Other)
  Sender: FDA-Public Use
  Company Number: 2009SP018943

PATIENT
  Age: 46 Year
  Sex: Female
  Weight: 86.1834 kg

DRUGS (6)
  1. ENTEX SOLUTION [Concomitant]
  2. OXYCODONE [Concomitant]
  3. DAYQUIL [Concomitant]
  4. NUVARING [Suspect]
     Indication: OVARIAN CYST
     Dates: start: 20040826, end: 20051201
  5. MIDRIN [Concomitant]
  6. VALTREX [Concomitant]

REACTIONS (12)
  - BLOOD CHOLESTEROL INCREASED [None]
  - PULMONARY THROMBOSIS [None]
  - CHOLELITHIASIS [None]
  - COAGULOPATHY [None]
  - INTESTINAL POLYP [None]
  - CHEST PAIN [None]
  - HIATUS HERNIA [None]
  - OCCULT BLOOD POSITIVE [None]
  - DYSPNOEA EXERTIONAL [None]
  - FEELING ABNORMAL [None]
  - PULMONARY EMBOLISM [None]
  - GASTROOESOPHAGEAL REFLUX DISEASE [None]
